FAERS Safety Report 25196025 (Version 1)
Quarter: 2025Q2

REPORT INFORMATION
  Report Type: Spontaneous
  Country: ES (occurrence: ES)
  Receive Date: 20250415
  Receipt Date: 20250415
  Transmission Date: 20250717
  Serious: Yes (Other)
  Sender: JOHNSON AND JOHNSON
  Company Number: ES-CHEPLA-2025004389

PATIENT
  Age: 63 Year
  Sex: Female

DRUGS (19)
  1. PALIPERIDONE PALMITATE [Suspect]
     Active Substance: PALIPERIDONE PALMITATE
     Indication: Schizophrenia
     Route: 030
     Dates: start: 201205, end: 201206
  2. PALIPERIDONE PALMITATE [Suspect]
     Active Substance: PALIPERIDONE PALMITATE
     Dates: start: 202306
  3. PALIPERIDONE PALMITATE [Suspect]
     Active Substance: PALIPERIDONE PALMITATE
     Route: 030
     Dates: start: 20230619
  4. PALIPERIDONE PALMITATE [Suspect]
     Active Substance: PALIPERIDONE PALMITATE
     Route: 030
     Dates: start: 20230626
  5. OLANZAPINE [Suspect]
     Active Substance: OLANZAPINE
     Indication: Schizophrenia
     Dates: start: 2009
  6. OLANZAPINE [Suspect]
     Active Substance: OLANZAPINE
     Dates: start: 201205
  7. OLANZAPINE [Suspect]
     Active Substance: OLANZAPINE
     Dates: start: 201206
  8. OLANZAPINE [Suspect]
     Active Substance: OLANZAPINE
     Dates: start: 202306
  9. OLANZAPINE [Suspect]
     Active Substance: OLANZAPINE
     Dates: start: 202306
  10. OLANZAPINE PAMOATE [Suspect]
     Active Substance: OLANZAPINE PAMOATE
     Indication: Schizophrenia
     Route: 030
     Dates: start: 201206
  11. ZUCLOPENTHIXOL [Suspect]
     Active Substance: ZUCLOPENTHIXOL
     Indication: Schizophrenia
     Route: 065
     Dates: start: 200911
  12. ZUCLOPENTHIXOL [Suspect]
     Active Substance: ZUCLOPENTHIXOL
  13. ZUCLOPENTHIXOL [Suspect]
     Active Substance: ZUCLOPENTHIXOL
     Dosage: CLOPIXOL
     Dates: start: 202302
  14. CLOZAPINE [Suspect]
     Active Substance: CLOZAPINE
     Indication: Schizophrenia
     Dosage: GRADUAL SWITCH
     Dates: start: 200911, end: 201205
  15. CLOZAPINE [Suspect]
     Active Substance: CLOZAPINE
     Indication: Bursitis
  16. CLOZAPINE [Suspect]
     Active Substance: CLOZAPINE
     Indication: Leukopenia
  17. LURASIDONE [Concomitant]
     Active Substance: LURASIDONE
     Indication: Schizophrenia
     Dates: start: 202302
  18. LURASIDONE [Concomitant]
     Active Substance: LURASIDONE
     Dates: start: 202306
  19. ARIPIPRAZOLE [Concomitant]
     Active Substance: ARIPIPRAZOLE
     Indication: Schizophrenia
     Dates: start: 202306

REACTIONS (2)
  - Bicytopenia [Recovered/Resolved with Sequelae]
  - Bicytopenia [Unknown]

NARRATIVE: CASE EVENT DATE: 20220701
